FAERS Safety Report 8171430-X (Version None)
Quarter: 2012Q1

REPORT INFORMATION
  Report Type: 
  Country: None (occurrence: None)
  Receive Date: 20120228
  Receipt Date: 20120222
  Transmission Date: 20120608
  Serious: Yes (Other)
  Sender: FDA-Public Use
  Company Number: US-PFIZER INC-2012030843

PATIENT
  Sex: Female

DRUGS (1)
  1. PRISTIQ [Suspect]
     Indication: DEPRESSION
     Dosage: 50 MG, 1X/DAY
     Route: 048
     Dates: start: 20111230, end: 20120117

REACTIONS (12)
  - ASPARTATE AMINOTRANSFERASE INCREASED [None]
  - FLUID RETENTION [None]
  - WEIGHT INCREASED [None]
  - PYREXIA [None]
  - HEPATIC ENZYME INCREASED [None]
  - MYALGIA [None]
  - ALANINE AMINOTRANSFERASE INCREASED [None]
  - SWELLING [None]
  - NAUSEA [None]
  - LOCALISED OEDEMA [None]
  - OEDEMA PERIPHERAL [None]
  - VOMITING [None]
